FAERS Safety Report 8556014 (Version 5)
Quarter: 2015Q4

REPORT INFORMATION
  Report Type: Spontaneous
  Country: US (occurrence: US)
  Receive Date: 20120510
  Receipt Date: 20151208
  Transmission Date: 20160305
  Serious: Yes (Life-Threatening, Hospitalization, Other)
  Sender: FDA-Public Use
  Company Number: US-BAYER-2012-043482

PATIENT
  Age: 26 Year
  Sex: Female
  Weight: 68.27 kg

DRUGS (2)
  1. YASMIN [Suspect]
     Active Substance: DROSPIRENONE\ETHINYL ESTRADIOL
     Indication: CONTRACEPTION
     Dosage: UNK
     Dates: start: 20040727, end: 20041210
  2. XENADRINE RFA-1 [Concomitant]

REACTIONS (19)
  - Injury [None]
  - General physical health deterioration [None]
  - Hemiparesis [None]
  - Mental impairment [None]
  - Embolic stroke [None]
  - Visual impairment [None]
  - Aphasia [None]
  - Hypoaesthesia [None]
  - Fatigue [None]
  - Memory impairment [None]
  - Embolism venous [None]
  - Pain [None]
  - Anhedonia [None]
  - Emotional distress [None]
  - Dizziness [None]
  - Quality of life decreased [None]
  - Anxiety [None]
  - Paraesthesia [None]
  - Speech disorder [None]

NARRATIVE: CASE EVENT DATE: 20041211
